FAERS Safety Report 6223729-1 (Version None)
Quarter: 2009Q2

REPORT INFORMATION
  Report Type: 
  Country: None (occurrence: None)
  Receive Date: 20090611
  Receipt Date: 20090409
  Transmission Date: 20091009
  Serious: No
  Sender: FDA-Public Use
  Company Number: PR-ABBOTT-09P-131-0567969-00

PATIENT
  Sex: Male
  Weight: 75.818 kg

DRUGS (9)
  1. HUMIRA [Suspect]
     Indication: CROHN'S DISEASE
     Route: 058
     Dates: start: 20090227
  2. FIORICET [Concomitant]
     Indication: MIGRAINE
     Route: 048
     Dates: start: 20090415
  3. FIORICET [Concomitant]
     Indication: BLOOD PRESSURE INCREASED
  4. ASACOL [Concomitant]
     Indication: CROHN'S DISEASE
     Route: 048
  5. PILOCARPINE HYDROCHLORIDE [Concomitant]
     Indication: GLAUCOMA
     Dosage: 2%
     Route: 001
  6. FOLIC ACID [Concomitant]
     Indication: VITAMIN SUPPLEMENTATION
     Route: 048
  7. ASCORBIC ACID [Concomitant]
     Indication: VITAMIN SUPPLEMENTATION
     Route: 048
  8. VITAMIN E [Concomitant]
     Indication: VITAMIN SUPPLEMENTATION
     Dosage: 2-3  TIMES WEEKLY
     Route: 048
  9. LOVAZA [Concomitant]
     Indication: VITAMIN SUPPLEMENTATION
     Dosage: 2-3 TIMES WEEKLY
     Route: 048

REACTIONS (4)
  - MIGRAINE [None]
  - OCULAR HYPERAEMIA [None]
  - POSTNASAL DRIP [None]
  - URTICARIA [None]
